FAERS Safety Report 24183049 (Version 3)
Quarter: 2024Q3

REPORT INFORMATION
  Report Type: Spontaneous
  Country: US (occurrence: US)
  Receive Date: 20240807
  Receipt Date: 20240906
  Transmission Date: 20241017
  Serious: No
  Sender: JOHNSON AND JOHNSON
  Company Number: US-JNJFOC-20240812412

PATIENT
  Age: 66 Year
  Sex: Male

DRUGS (1)
  1. MENS ROGAINE EXTRA STRENGTH [Suspect]
     Active Substance: MINOXIDIL
     Indication: Alopecia
     Dosage: ONLY MENTIONED USING A DROPPER
     Route: 061
     Dates: start: 20240530

REACTIONS (2)
  - Drug ineffective [Unknown]
  - Application site pruritus [Unknown]

NARRATIVE: CASE EVENT DATE: 20240530
